FAERS Safety Report 4317341-9 (Version None)
Quarter: 2004Q1

REPORT INFORMATION
  Report Type: 
  Country: None (occurrence: None)
  Receive Date: 20040305
  Receipt Date: 20031216
  Transmission Date: 20041129
  Serious: No
  Sender: FDA-Public Use
  Company Number: US-SHR-03-018966

PATIENT
  Age: 65 Year
  Sex: Female

DRUGS (3)
  1. CAMPATH [Suspect]
     Indication: CHRONIC LYMPHOCYTIC LEUKAEMIA
     Dosage: 30 MG, INTRAVENOUS; 10 MG, 3MG INTRAVENOUS
     Route: 042
     Dates: start: 20031201, end: 20031201
  2. CAMPATH [Suspect]
     Indication: CHRONIC LYMPHOCYTIC LEUKAEMIA
     Dosage: 30 MG, INTRAVENOUS; 10 MG, 3MG INTRAVENOUS
     Route: 042
     Dates: start: 20031201, end: 20031201
  3. CAMPATH [Suspect]
     Indication: CHRONIC LYMPHOCYTIC LEUKAEMIA
     Dosage: 30 MG, INTRAVENOUS; 10 MG, 3MG INTRAVENOUS
     Route: 042
     Dates: start: 20031201

REACTIONS (2)
  - DYSPNOEA [None]
  - WHEEZING [None]
